FAERS Safety Report 7469184-5 (Version None)
Quarter: 2011Q2

REPORT INFORMATION
  Report Type: 
  Country: None (occurrence: None)
  Receive Date: 20110429
  Receipt Date: 20110420
  Transmission Date: 20111010
  Serious: Yes (Hospitalization)
  Sender: FDA-Public Use
  Company Number: 2011MA004391

PATIENT
  Age: 83 Year
  Sex: Female

DRUGS (2)
  1. LOSARTAN POTASSIUM [Suspect]
     Indication: HYPERTENSION
     Dosage: 100 MG; QD; PO
     Route: 048
     Dates: start: 20100101, end: 20110401
  2. HYDROCODONE BITARTRATE + IBUPROFEN [Concomitant]

REACTIONS (8)
  - MALAISE [None]
  - PRODUCT SUBSTITUTION ISSUE [None]
  - ASTHENIA [None]
  - DIZZINESS [None]
  - HEADACHE [None]
  - TREMOR [None]
  - ARTHRALGIA [None]
  - NAUSEA [None]
